FAERS Safety Report 9239088 (Version 2)
Quarter: 2013Q3

REPORT INFORMATION
  Report Type: Report from Study
  Country: US (occurrence: US)
  Receive Date: 20130418
  Receipt Date: 20130711
  Transmission Date: 20140515
  Serious: Yes (Hospitalization)
  Sender: FDA-Public Use
  Company Number: US-TEVA-380577USA

PATIENT
  Age: 49 Year
  Sex: Female
  Weight: 69.06 kg

DRUGS (11)
  1. CUSTIRSEN [Suspect]
     Indication: NEOPLASM
  2. PACLITAXEL [Suspect]
     Indication: NEOPLASM
     Dates: start: 20121130
  3. CARBOPLATIN [Suspect]
     Indication: NEOPLASM
     Dates: start: 20121130
  4. CLARITIN [Concomitant]
     Indication: HYPERSENSITIVITY
     Dates: start: 201109
  5. BENADRYL [Concomitant]
     Indication: PROPHYLAXIS
     Dates: start: 201109
  6. POTASSIUM [Concomitant]
     Indication: SUPPLEMENTATION THERAPY
     Dates: start: 201109
  7. NEXIUM [Concomitant]
     Indication: GASTROOESOPHAGEAL REFLUX DISEASE
     Dates: start: 201109
  8. ZOFRAN [Concomitant]
     Indication: NAUSEA
     Dates: start: 201109
  9. COMPAZINE [Concomitant]
     Indication: NAUSEA
     Dates: start: 201109
  10. PHENERGAN [Concomitant]
     Indication: NAUSEA
     Dates: start: 201109
  11. MEGACE [Concomitant]
     Indication: DECREASED APPETITE
     Dates: start: 201109

REACTIONS (2)
  - Pleural effusion [Recovered/Resolved]
  - Ascites [Recovered/Resolved]
